FAERS Safety Report 15454692 (Version 2)
Quarter: 2019Q1

REPORT INFORMATION
  Report Type: Report from Study
  Country: DE (occurrence: DE)
  Receive Date: 20181002
  Receipt Date: 20190213
  Transmission Date: 20190417
  Serious: Yes (Hospitalization, Other)
  Sender: FDA-Public Use
  Company Number: DE-ROCHE-2044289

PATIENT
  Age: 74 Year
  Sex: Female

DRUGS (8)
  1. DYTIDE [Concomitant]
     Active Substance: BENZTHIAZIDE\TRIAMTERENE
  2. METHOTREXAT [Suspect]
     Active Substance: METHOTREXATE
     Indication: RHEUMATOID ARTHRITIS
     Route: 065
     Dates: end: 201707
  3. OMEPRAZOL [Concomitant]
     Active Substance: OMEPRAZOLE
  4. RITUXIMAB. [Suspect]
     Active Substance: RITUXIMAB
     Indication: RHEUMATOID ARTHRITIS
     Dosage: LAST CYCLE OF RITUXIMAB WAS ADMINISTERED ON 06/SEP/2016
     Route: 065
     Dates: end: 20160906
  5. METOPROLOL. [Concomitant]
     Active Substance: METOPROLOL
  6. TILIDIN [Concomitant]
     Active Substance: NALOXONE HYDROCHLORIDE\TILIDINE HYDROCHLORIDE
  7. HYDROXYCHLOROQUINE [Suspect]
     Active Substance: HYDROXYCHLOROQUINE
     Indication: RHEUMATOID ARTHRITIS
     Route: 065
  8. PREDNISOLONE. [Concomitant]
     Active Substance: PREDNISOLONE

REACTIONS (5)
  - Hyponatraemia [Unknown]
  - Hypokalaemia [Unknown]
  - Helicobacter gastritis [Recovered/Resolved]
  - Urinary tract infection [Unknown]
  - Renal failure [Unknown]

NARRATIVE: CASE EVENT DATE: 201706
